FAERS Safety Report 8522617-5 (Version None)
Quarter: 2012Q3

REPORT INFORMATION
  Report Type: 
  Country: None (occurrence: None)
  Receive Date: 20120719
  Receipt Date: 20120717
  Transmission Date: 20120928
  Serious: Yes (Death)
  Sender: FDA-Public Use
  Company Number: GB-ABBOTT-12P-167-0957219-00

PATIENT
  Sex: Female
  Weight: 66 kg

DRUGS (2)
  1. STEROIDS (UNSPECIFIED) [Concomitant]
     Indication: PRODUCT USED FOR UNKNOWN INDICATION
  2. HUMIRA [Suspect]
     Indication: RHEUMATOID ARTHRITIS
     Route: 058
     Dates: start: 20070309, end: 20070906

REACTIONS (2)
  - CARDIAC FAILURE CONGESTIVE [None]
  - RHEUMATOID ARTHRITIS [None]
